FAERS Safety Report 6830636-X (Version None)
Quarter: 2010Q3

REPORT INFORMATION
  Report Type: 
  Country: None (occurrence: None)
  Receive Date: 20100709
  Receipt Date: 20100709
  Transmission Date: 20110219
  Serious: No
  Sender: FDA-Public Use
  Company Number: None

PATIENT
  Age: 56 Year
  Sex: Male
  Weight: 73.9363 kg

DRUGS (1)
  1. ZIPSOR [Suspect]
     Indication: MUSCULOSKELETAL CHEST PAIN
     Dosage: 6-25-2010 ONCE ORAL
     Route: 048
     Dates: start: 20100625

REACTIONS (13)
  - ASTHENIA [None]
  - BACK PAIN [None]
  - CHILLS [None]
  - DECREASED APPETITE [None]
  - DIZZINESS [None]
  - FATIGUE [None]
  - GINGIVAL SWELLING [None]
  - HEADACHE [None]
  - LIP SWELLING [None]
  - MYALGIA [None]
  - ORAL HERPES [None]
  - PAIN IN EXTREMITY [None]
  - SOMNOLENCE [None]
